FAERS Safety Report 7515438-3 (Version None)
Quarter: 2011Q2

REPORT INFORMATION
  Report Type: 
  Country: None (occurrence: None)
  Receive Date: 20110601
  Receipt Date: 20110518
  Transmission Date: 20111010
  Serious: Yes (Other)
  Sender: FDA-Public Use
  Company Number: US-JNJFOC-20110409796

PATIENT
  Sex: Male

DRUGS (5)
  1. SULFACETAMIDE SODIUM [Concomitant]
  2. REMICADE [Suspect]
     Indication: COLITIS ULCERATIVE
     Route: 042
     Dates: start: 20110101
  3. VANCOMYCIN [Concomitant]
     Indication: CLOSTRIDIAL INFECTION
     Dosage: START DATE REPORTED AS: U OCT 2011
     Route: 042
     Dates: start: 20101001
  4. TRETINOIN [Concomitant]
     Route: 061
  5. SULFUR [Concomitant]

REACTIONS (1)
  - DERMOID CYST [None]
